FAERS Safety Report 7472173-8 (Version None)
Quarter: 2011Q2

REPORT INFORMATION
  Report Type: 
  Country: None (occurrence: None)
  Receive Date: 20110511
  Receipt Date: 20110221
  Transmission Date: 20111010
  Serious: No
  Sender: FDA-Public Use
  Company Number: A0914671A

PATIENT
  Age: 47 Year
  Sex: Female

DRUGS (2)
  1. XANAX [Concomitant]
  2. TYKERB [Suspect]
     Indication: BREAST CANCER
     Dosage: 750MG PER DAY
     Route: 048
     Dates: start: 20110207

REACTIONS (1)
  - DIARRHOEA [None]
